FAERS Safety Report 13369302 (Version 2)
Quarter: 2017Q2

REPORT INFORMATION
  Report Type: Spontaneous
  Country: TW (occurrence: TW)
  Receive Date: 20170324
  Receipt Date: 20170426
  Transmission Date: 20170830
  Serious: Yes (Hospitalization)
  Sender: FDA-Public Use
  Company Number: TW-ROCHE-1910242

PATIENT
  Age: 49 Year
  Sex: Male
  Weight: 88 kg

DRUGS (9)
  1. MABTHERA [Suspect]
     Active Substance: RITUXIMAB
     Route: 041
     Dates: start: 20170302, end: 20170302
  2. SANDIMMUN NEORAL [Concomitant]
     Active Substance: CYCLOSPORINE
     Indication: MICROSCOPIC POLYANGIITIS
     Route: 048
     Dates: start: 20150710
  3. NEURONTIN (TAIWAN) [Concomitant]
     Indication: MICROSCOPIC POLYANGIITIS
     Route: 048
     Dates: start: 20150710
  4. BOKEY [Concomitant]
     Indication: MICROSCOPIC POLYANGIITIS
     Route: 048
     Dates: start: 20150710
  5. METHYLPREDNISOLONE. [Concomitant]
     Active Substance: METHYLPREDNISOLONE
     Indication: MICROSCOPIC POLYANGIITIS
     Route: 048
     Dates: start: 20150710
  6. RIVOTRIL [Concomitant]
     Active Substance: CLONAZEPAM
     Indication: MICROSCOPIC POLYANGIITIS
     Route: 048
     Dates: start: 20150710
  7. CELECOXIB. [Concomitant]
     Active Substance: CELECOXIB
     Indication: MICROSCOPIC POLYANGIITIS
     Route: 048
     Dates: start: 20150710
  8. MABTHERA [Suspect]
     Active Substance: RITUXIMAB
     Route: 041
     Dates: start: 20170216, end: 20170223
  9. MABTHERA [Suspect]
     Active Substance: RITUXIMAB
     Indication: MICROSCOPIC POLYANGIITIS
     Dosage: CYCLE 1
     Route: 041
     Dates: start: 20170201, end: 20170201

REACTIONS (6)
  - Muscle twitching [Not Recovered/Not Resolved]
  - Muscle spasms [Recovering/Resolving]
  - Dizziness [Not Recovered/Not Resolved]
  - Hypoaesthesia [Not Recovered/Not Resolved]
  - Muscular weakness [Not Recovered/Not Resolved]
  - Hepatitis B reactivation [Not Recovered/Not Resolved]

NARRATIVE: CASE EVENT DATE: 20170304
